FAERS Safety Report 10890586 (Version 4)
Quarter: 2015Q1

REPORT INFORMATION
  Report Type: Report from Study
  Country: US (occurrence: US)
  Receive Date: 20150305
  Receipt Date: 20150326
  Transmission Date: 20150721
  Serious: Yes (Hospitalization)
  Sender: FDA-Public Use
  Company Number: US-SA-2015SA026909

PATIENT
  Age: 64 Year
  Sex: Male

DRUGS (1)
  1. LANTUS [Suspect]
     Active Substance: INSULIN GLARGINE
     Indication: TYPE 2 DIABETES MELLITUS
     Dosage: 90U AM/ 100U PM, VIAL
     Route: 065

REACTIONS (3)
  - Fall [Unknown]
  - Drug administration error [Unknown]
  - Fracture [Unknown]

NARRATIVE: CASE EVENT DATE: 20140801
